FAERS Safety Report 7076780-6 (Version None)
Quarter: 2010Q4

REPORT INFORMATION
  Report Type: 
  Country: None (occurrence: None)
  Receive Date: 20101101
  Receipt Date: 20101021
  Transmission Date: 20110411
  Serious: Yes (Other)
  Sender: FDA-Public Use
  Company Number: BR-JNJFOC-20101007455

PATIENT
  Sex: Female

DRUGS (2)
  1. REMICADE [Suspect]
     Indication: ILL-DEFINED DISORDER
     Route: 042
  2. ACTEMRA [Concomitant]

REACTIONS (1)
  - TUBERCULOSIS [None]
